FAERS Safety Report 14402438 (Version 1)
Quarter: 2018Q1

REPORT INFORMATION
  Report Type: Spontaneous
  Country: US (occurrence: US)
  Receive Date: 20180117
  Receipt Date: 20180117
  Transmission Date: 20180509
  Serious: No
  Sender: FDA-Public Use
  Company Number: US-PFIZER INC-2018015791

PATIENT
  Age: 60 Year
  Sex: Female
  Weight: 49.9 kg

DRUGS (2)
  1. CHANTIX [Suspect]
     Active Substance: VARENICLINE TARTRATE
     Dosage: 0.5 MG, 2X/DAY
     Dates: start: 20180108, end: 20180111
  2. CHANTIX [Suspect]
     Active Substance: VARENICLINE TARTRATE
     Indication: SMOKING CESSATION THERAPY
     Dosage: 0.5 MG, 1X/DAY
     Dates: start: 20180105, end: 20180107

REACTIONS (7)
  - Somnolence [Unknown]
  - Condition aggravated [Unknown]
  - Myalgia [Unknown]
  - Fatigue [Unknown]
  - Muscle contractions involuntary [Unknown]
  - Nausea [Unknown]
  - Musculoskeletal pain [Unknown]

NARRATIVE: CASE EVENT DATE: 201801
